FAERS Safety Report 5005098-8 (Version None)
Quarter: 2006Q2

REPORT INFORMATION
  Report Type: 
  Country: None (occurrence: None)
  Receive Date: 20060512
  Receipt Date: 20060508
  Transmission Date: 20061013
  Serious: Yes (Other)
  Sender: FDA-Public Use
  Company Number: 2006056096

PATIENT
  Age: 78 Year
  Sex: Male
  Weight: 75 kg

DRUGS (1)
  1. LYRICA [Suspect]
     Indication: CANCER PAIN
     Dosage: 100 MG (50 MG, 2 IN 1 D) ORAL
     Route: 048
     Dates: start: 20060405, end: 20060412

REACTIONS (3)
  - DYSKINESIA [None]
  - FORMICATION [None]
  - MYOKYMIA [None]
